FAERS Safety Report 4706613-1 (Version None)
Quarter: 2005Q2

REPORT INFORMATION
  Report Type: 
  Country: None (occurrence: None)
  Receive Date: 20050629
  Receipt Date: 20050324
  Transmission Date: 20051028
  Serious: No
  Sender: FDA-Public Use
  Company Number: 05P-163-0295183-00

PATIENT
  Age: 61 Year
  Sex: Female
  Weight: 88.4514 kg

DRUGS (9)
  1. HUMIRA [Suspect]
     Indication: RHEUMATOID ARTHRITIS
     Dosage: 40 MG, 1 IN 2 WK, SUBCUTANEOUS
     Route: 058
     Dates: start: 20050101, end: 20050316
  2. CANDESARTAN CILEXETIL [Concomitant]
  3. CHLOROTHALICONE [Concomitant]
  4. INSULIN [Concomitant]
  5. GLIMEPIRIDE [Concomitant]
  6. ALPRAZOLAM [Concomitant]
  7. AMITRIPTYLINE HCL [Concomitant]
  8. PROVENTIL [Concomitant]
  9. CETIRIZINE HCL [Concomitant]

REACTIONS (4)
  - CHEST X-RAY ABNORMAL [None]
  - NASOPHARYNGITIS [None]
  - PRURITUS [None]
  - RASH [None]
